FAERS Safety Report 4933568-7 (Version None)
Quarter: 2006Q1

REPORT INFORMATION
  Report Type: 
  Country: None (occurrence: None)
  Receive Date: 20060117
  Receipt Date: 20051013
  Transmission Date: 20060701
  Serious: Yes (Other)
  Sender: FDA-Public Use
  Company Number: 2005142689

PATIENT
  Age: 78 Year
  Sex: Female
  Weight: 71.6683 kg

DRUGS (6)
  1. MACUGEN [Suspect]
     Indication: MACULAR DEGENERATION
     Dosage: (1 IN 6 WK), INTRAOCULAR
     Route: 031
     Dates: start: 20050301
  2. HYDROCHLOROTHIAZIDE [Concomitant]
  3. CITALOPRAM (CITALOPRAM) [Concomitant]
  4. METOPROLOL (METOPROLOL) [Concomitant]
  5. COUMADIN [Concomitant]
  6. RAMIPRIL [Concomitant]

REACTIONS (2)
  - VISION BLURRED [None]
  - VISUAL ACUITY REDUCED [None]
